FAERS Safety Report 7031283-X (Version None)
Quarter: 2010Q4

REPORT INFORMATION
  Report Type: 
  Country: None (occurrence: None)
  Receive Date: 20101006
  Receipt Date: 20100928
  Transmission Date: 20110411
  Serious: Yes (Hospitalization)
  Sender: FDA-Public Use
  Company Number: B0673288A

PATIENT
  Sex: Female

DRUGS (5)
  1. VALTREX [Suspect]
     Indication: HERPES ZOSTER
     Dosage: 3000MG PER DAY
     Route: 048
     Dates: start: 20100830, end: 20100902
  2. LYRICA [Concomitant]
     Indication: HERPES ZOSTER
     Dosage: 150MG PER DAY
     Route: 048
     Dates: start: 20100830, end: 20100902
  3. LANSOPRAZOLE [Concomitant]
     Indication: GASTRIC ULCER
     Dosage: 15MG PER DAY
     Route: 048
  4. OLMETEC [Concomitant]
     Indication: HYPERTENSION
     Dosage: 20MG PER DAY
     Route: 048
  5. FOSAMAC [Concomitant]
     Indication: OSTEOPOROSIS
     Route: 048

REACTIONS (9)
  - ALTERED STATE OF CONSCIOUSNESS [None]
  - BLOOD CREATININE INCREASED [None]
  - BLOOD POTASSIUM INCREASED [None]
  - BLOOD UREA INCREASED [None]
  - DYSLALIA [None]
  - HYPOAESTHESIA ORAL [None]
  - MALAISE [None]
  - VERTIGO [None]
  - VOMITING [None]
